FAERS Safety Report 21447800 (Version 1)
Quarter: 2022Q4

REPORT INFORMATION
  Report Type: Report from Study
  Country: US (occurrence: US)
  Receive Date: 20221012
  Receipt Date: 20221012
  Transmission Date: 20230112
  Serious: Yes (Hospitalization, Other)
  Sender: FDA-Public Use
  Company Number: US-GW PHARMA-2022-US-032127

PATIENT
  Age: 6 Year
  Sex: Male
  Weight: 13.6 kg

DRUGS (1)
  1. EPIDIOLEX [Suspect]
     Active Substance: CANNABIDIOL
     Indication: Epilepsy
     Dosage: 1.6 MILLILITER, BID

REACTIONS (3)
  - Chest injury [Unknown]
  - Ear infection [Unknown]
  - Eye infection [Unknown]

NARRATIVE: CASE EVENT DATE: 20220901
